FAERS Safety Report 19081751 (Version 2)
Quarter: 2021Q2

REPORT INFORMATION
  Report Type: Spontaneous
  Country: TR (occurrence: TR)
  Receive Date: 20210401
  Receipt Date: 20210401
  Transmission Date: 20210717
  Serious: Yes (Hospitalization, Other)
  Sender: FDA-Public Use
  Company Number: TR-SUN PHARMACEUTICAL INDUSTRIES LTD-2021R1-288779

PATIENT
  Age: 72 Year
  Sex: Female

DRUGS (2)
  1. PHENYTOIN. [Suspect]
     Active Substance: PHENYTOIN
     Indication: SEIZURE PROPHYLAXIS
     Dosage: 100 MILLIGRAM, DAILY
     Route: 048
  2. TEMOZOLOMIDE. [Concomitant]
     Active Substance: TEMOZOLOMIDE
     Indication: RASH ERYTHEMATOUS
     Dosage: 130 MILLIGRAM, DAILY
     Route: 048

REACTIONS (1)
  - Erythema multiforme [Recovered/Resolved]
